FAERS Safety Report 13510889 (Version 2)
Quarter: 2017Q2

REPORT INFORMATION
  Report Type: Report from Study
  Country: FR (occurrence: FR)
  Receive Date: 20170503
  Receipt Date: 20170531
  Transmission Date: 20170830
  Serious: Yes (Other)
  Sender: FDA-Public Use
  Company Number: FR-GILEAD-2017-0270740

PATIENT
  Age: 53 Year
  Sex: Female
  Weight: 108 kg

DRUGS (2)
  1. HARVONI [Suspect]
     Active Substance: LEDIPASVIR\SOFOSBUVIR
     Indication: CHRONIC HEPATITIS C
     Dosage: UNK
     Route: 065
     Dates: start: 20160123, end: 201604
  2. ALDACTAZINE [Concomitant]
     Active Substance: ALTHIAZIDE\SPIRONOLACTONE

REACTIONS (3)
  - Genotype drug resistance test positive [Unknown]
  - Drug ineffective [Unknown]
  - Hepatitis C [Unknown]

NARRATIVE: CASE EVENT DATE: 20160729
